FAERS Safety Report 8102094 (Version 4)
Quarter: 2012Q4

REPORT INFORMATION
  Report Type: 
  Country: JP (occurrence: JP)
  Receive Date: 20110823
  Receipt Date: 20120925
  Transmission Date: 20130627
  Serious: Yes (Hospitalization, Other)
  Sender: FDA-Public Use
  Company Number: JP-PFIZER INC-2011190074

PATIENT
  Age: 69 Year
  Sex: Female
  Weight: 39.1 kg

DRUGS (8)
  1. LYRICA [Suspect]
     Indication: POST HERPETIC NEURALGIA
     Dosage: 75 mg, 1x/day
     Route: 048
     Dates: start: 20100802, end: 20110703
  2. LYRICA [Suspect]
     Dosage: 75 mg, 2x/day
     Route: 048
     Dates: start: 201108, end: 20110811
  3. LOXOPROFEN SODIUM [Concomitant]
     Dosage: 60 mg, 3x/day
     Route: 048
     Dates: start: 20100626, end: 20110703
  4. MEXITIL [Concomitant]
     Dosage: 100 mg, 3x/day
     Dates: start: 20100626, end: 20101028
  5. TEGRETOL [Concomitant]
     Dosage: 100 mg, 2x/day
     Dates: start: 20100626
  6. DEPAS [Concomitant]
     Dosage: 0.5 mg, 1x/day
     Dates: start: 20100626
  7. DESYREL [Concomitant]
     Dosage: 50 mg, 1x/day
     Dates: start: 20100626, end: 20101028
  8. OMEPRAZOLE [Concomitant]
     Dosage: 20 mg, 1x/day
     Dates: start: 20100626

REACTIONS (7)
  - Pleural effusion [Recovered/Resolved]
  - Oedema [Recovered/Resolved]
  - Disseminated intravascular coagulation [Recovered/Resolved]
  - Hypoalbuminaemia [Recovering/Resolving]
  - Malabsorption [Recovering/Resolving]
  - Prothrombin time prolonged [Recovering/Resolving]
  - Neuralgia [Not Recovered/Not Resolved]
